FAERS Safety Report 8464275-4 (Version None)
Quarter: 2012Q2

REPORT INFORMATION
  Report Type: 
  Country: None (occurrence: None)
  Receive Date: 20120625
  Receipt Date: 20120620
  Transmission Date: 20120825
  Serious: Yes (Hospitalization, Other)
  Sender: FDA-Public Use
  Company Number: TR-PFIZER INC-2012036467

PATIENT
  Age: 18 Month
  Sex: Male
  Weight: 9.2 kg

DRUGS (2)
  1. TRANEXAMIC ACID [Concomitant]
     Indication: HAEMORRHAGE
     Dosage: 30 MG/KG/DAY, 3 TIMES PER DAY
     Route: 042
     Dates: start: 20120120, end: 20120131
  2. ANTIHEMOPHILIC FACTOR (HUMAN) [Suspect]
     Indication: FACTOR VIII DEFICIENCY
     Dosage: 1000 IU (2X500 IU), WEEKLY
     Route: 042
     Dates: start: 20120109, end: 20120112

REACTIONS (6)
  - TONGUE HAEMORRHAGE [None]
  - HAEMATOCRIT DECREASED [None]
  - MEAN CELL VOLUME DECREASED [None]
  - SOFT TISSUE DISORDER [None]
  - HAEMOGLOBIN DECREASED [None]
  - FACTOR VIII INHIBITION [None]
